FAERS Safety Report 6531405-0 (Version None)
Quarter: 2010Q1

REPORT INFORMATION
  Report Type: 
  Country: None (occurrence: None)
  Receive Date: 20100108
  Receipt Date: 20091202
  Transmission Date: 20100710
  Serious: No
  Sender: FDA-Public Use
  Company Number: A0815806A

PATIENT
  Age: 68 Year
  Sex: Female

DRUGS (3)
  1. TYKERB [Suspect]
     Indication: BREAST CANCER
     Dosage: 750MG PER DAY
     Route: 048
     Dates: start: 20091029
  2. PROZAC [Concomitant]
  3. XELODA [Concomitant]

REACTIONS (13)
  - DECREASED APPETITE [None]
  - DERMATITIS ACNEIFORM [None]
  - DIARRHOEA [None]
  - DRY SKIN [None]
  - EPISTAXIS [None]
  - FATIGUE [None]
  - LIP BLISTER [None]
  - MYALGIA [None]
  - NAUSEA [None]
  - PAIN IN EXTREMITY [None]
  - RASH PUSTULAR [None]
  - SKIN CHAPPED [None]
  - TONGUE BLISTERING [None]
